FAERS Safety Report 6880847-2 (Version None)
Quarter: 2010Q3

REPORT INFORMATION
  Report Type: 
  Country: None (occurrence: None)
  Receive Date: 20100728
  Receipt Date: 20100719
  Transmission Date: 20110219
  Serious: Yes (Death, Other)
  Sender: FDA-Public Use
  Company Number: US-CELGENEUS-163-20785-10062967

PATIENT
  Sex: Male

DRUGS (1)
  1. THALOMID [Suspect]
     Indication: MULTIPLE MYELOMA
     Route: 048
     Dates: start: 20100329, end: 20100426

REACTIONS (3)
  - FAILURE TO THRIVE [None]
  - OESOPHAGEAL CARCINOMA [None]
  - SQUAMOUS CELL CARCINOMA [None]
